FAERS Safety Report 6815678-2 (Version None)
Quarter: 2010Q3

REPORT INFORMATION
  Report Type: 
  Country: None (occurrence: None)
  Receive Date: 20100702
  Receipt Date: 20100624
  Transmission Date: 20110219
  Serious: Yes (Hospitalization, Other)
  Sender: FDA-Public Use
  Company Number: US-ABBOTT-10P-163-0653923-00

PATIENT
  Sex: Male
  Weight: 64.468 kg

DRUGS (12)
  1. HUMIRA [Suspect]
     Indication: PSORIASIS
     Route: 058
     Dates: start: 20090301, end: 20091201
  2. CALCITRIOL [Concomitant]
     Indication: PRODUCT USED FOR UNKNOWN INDICATION
  3. GLIMEPIRIDE [Concomitant]
     Indication: DIABETES MELLITUS
  4. HYDROCODONE BITARTRATE [Concomitant]
     Indication: GOUT
  5. NADOLOL [Concomitant]
     Indication: HYPERTENSION
  6. NIASPAN [Concomitant]
     Indication: CARDIAC DISORDER
  7. PLAVIX [Concomitant]
     Indication: CEREBROVASCULAR DISORDER
     Dates: start: 20050101
  8. ASPIRIN [Concomitant]
     Indication: PRODUCT USED FOR UNKNOWN INDICATION
  9. PRAVASTATIN [Concomitant]
     Indication: BLOOD CHOLESTEROL INCREASED
  10. PREDNISONE [Concomitant]
     Indication: GOUT
  11. ALLOPURINOL [Concomitant]
     Indication: GOUT
  12. AMLODIPINE [Concomitant]
     Indication: HYPERTENSION

REACTIONS (13)
  - ARTERIOVENOUS FISTULA THROMBOSIS [None]
  - BRAIN INJURY [None]
  - CEREBROVASCULAR ACCIDENT [None]
  - COORDINATION ABNORMAL [None]
  - DECREASED APPETITE [None]
  - FOAMING AT MOUTH [None]
  - GOUT [None]
  - ILL-DEFINED DISORDER [None]
  - RENAL FAILURE [None]
  - STROKE IN EVOLUTION [None]
  - TUBERCULOSIS [None]
  - VIITH NERVE PARALYSIS [None]
  - WEIGHT DECREASED [None]
